FAERS Safety Report 13723669 (Version 1)
Quarter: 2017Q3

REPORT INFORMATION
  Report Type: Spontaneous
  Country: US (occurrence: US)
  Receive Date: 20170706
  Receipt Date: 20170706
  Transmission Date: 20171127
  Serious: Yes (Other)
  Sender: FDA-Public Use
  Company Number: US-JNJFOC-20170515786

PATIENT
  Age: 73 Year
  Sex: Female

DRUGS (2)
  1. SIMPONI ARIA [Suspect]
     Active Substance: GOLIMUMAB
     Indication: RHEUMATOID ARTHRITIS
     Dosage: 2MG/KG VIAL, AT WEEK 0, 4 AND 8
     Route: 042
     Dates: start: 20160225, end: 20170113
  2. METHOTREXATE. [Concomitant]
     Active Substance: METHOTREXATE
     Dosage: DISCONTINUED DUE TO (INCREASED) 12/15 DUE TO LIVER ENZYME
     Route: 065

REACTIONS (1)
  - Thrombocytopenia [Recovered/Resolved]

NARRATIVE: CASE EVENT DATE: 201608
